FAERS Safety Report 15391042 (Version 1)
Quarter: 2018Q3

REPORT INFORMATION
  Report Type: Spontaneous
  Country: DE (occurrence: DE)
  Receive Date: 20180917
  Receipt Date: 20180917
  Transmission Date: 20181010
  Serious: Yes (Life-Threatening, Other)
  Sender: FDA-Public Use
  Company Number: DE-TESARO, INC-DE-2018TSO04462

PATIENT

DRUGS (1)
  1. NIRAPARIB [Suspect]
     Active Substance: NIRAPARIB
     Indication: OVARIAN CANCER
     Dosage: 200 MG, UNK

REACTIONS (5)
  - Haematochezia [Unknown]
  - Conjunctival haemorrhage [Unknown]
  - Thrombocytopenia [Unknown]
  - Intentional underdose [Unknown]
  - Haematuria [Unknown]

NARRATIVE: CASE EVENT DATE: 20180824
